FAERS Safety Report 17899189 (Version 1)
Quarter: 2020Q2

REPORT INFORMATION
  Report Type: Other
  Country: CA (occurrence: CA)
  Receive Date: 20200616
  Receipt Date: 20200616
  Transmission Date: 20200714
  Serious: Yes (Hospitalization)
  Sender: FDA-Public Use
  Company Number: CA-NUVO PHARMACEUTICALS INC-2085907

PATIENT
  Age: 31 Year
  Sex: Female

DRUGS (2)
  1. COCAINE HYDROCHLORIDE. [Suspect]
     Active Substance: COCAINE HYDROCHLORIDE
     Route: 065
  2. OXYCODONE HYDROCHLORIDE. [Suspect]
     Active Substance: OXYCODONE HYDROCHLORIDE
     Indication: PRODUCT USED FOR UNKNOWN INDICATION
     Route: 065

REACTIONS (9)
  - Nasal necrosis [Unknown]
  - Rhinorrhoea [Unknown]
  - Wrong technique in product usage process [Unknown]
  - Dysarthria [Unknown]
  - Nasal septum perforation [Unknown]
  - Speech disorder [Unknown]
  - Drug abuse [Unknown]
  - Velopharyngeal incompetence [Unknown]
  - Loss of employment [Unknown]
